FAERS Safety Report 5385348-9 (Version None)
Quarter: 2007Q3

REPORT INFORMATION
  Report Type: 
  Country: None (occurrence: None)
  Receive Date: 20070709
  Receipt Date: 20070709
  Transmission Date: 20080115
  Serious: Yes (Hospitalization)
  Sender: FDA-Public Use
  Company Number: None

PATIENT
  Age: 77 Year
  Sex: Male
  Weight: 68.0396 kg

DRUGS (1)
  1. SIMVASTATIN [Suspect]
     Indication: MYOCARDIAL INFARCTION
     Dosage: 1 EACH EVENING PO
     Route: 048
     Dates: start: 20070604, end: 20070705

REACTIONS (4)
  - FATIGUE [None]
  - FLUID INTAKE REDUCED [None]
  - MYALGIA [None]
  - VOMITING [None]
